FAERS Safety Report 5034253-6 (Version None)
Quarter: 2006Q2

REPORT INFORMATION
  Report Type: 
  Country: None (occurrence: None)
  Receive Date: 20060626
  Receipt Date: 20060518
  Transmission Date: 20061013
  Serious: Yes (Death)
  Sender: FDA-Public Use
  Company Number: 2006UW09639

PATIENT
  Age: 16397 Day
  Sex: Female
  Weight: 268 kg

DRUGS (9)
  1. AMITRIPTYLINE HCL [Suspect]
     Indication: PAIN
     Route: 048
     Dates: start: 20000815
  2. REQUIP [Suspect]
     Indication: RESTLESS LEGS SYNDROME
     Route: 048
     Dates: start: 20051101
  3. PSEUDOEPHEDRINE HCL [Suspect]
  4. DEXTROMETHORPHAN [Suspect]
  5. NORTRIPTYLINE HCL [Suspect]
  6. HYDROCODONE [Suspect]
  7. MORPHINE [Concomitant]
     Route: 048
     Dates: start: 20000905
  8. NORCO [Concomitant]
     Dates: start: 20000808
  9. UNIRETIC [Concomitant]
     Dosage: 15/25 MG
     Route: 048
     Dates: start: 20030503

REACTIONS (21)
  - ACUTE RESPIRATORY DISTRESS SYNDROME [None]
  - BRONCHOPNEUMONIA [None]
  - CARDIAC ARREST [None]
  - CARDIAC HYPERTROPHY [None]
  - CHOLELITHIASIS [None]
  - CORONARY ARTERY STENOSIS [None]
  - DIFFUSE ALVEOLAR DAMAGE [None]
  - DRUG TOXICITY [None]
  - DYSPNOEA [None]
  - ELECTROMECHANICAL DISSOCIATION [None]
  - KIDNEY FIBROSIS [None]
  - MALAISE [None]
  - NEPHROSCLEROSIS [None]
  - OVARIAN CYST [None]
  - OVERDOSE [None]
  - PULMONARY CONGESTION [None]
  - PULMONARY OEDEMA [None]
  - PYELONEPHRITIS [None]
  - PYELONEPHRITIS ACUTE [None]
  - SUDDEN DEATH [None]
  - VENTRICULAR FIBRILLATION [None]
